FAERS Safety Report 6215196-9 (Version None)
Quarter: 2009Q2

REPORT INFORMATION
  Report Type: 
  Country: None (occurrence: None)
  Receive Date: 20090604
  Receipt Date: 20090525
  Transmission Date: 20091009
  Serious: Yes (Hospitalization)
  Sender: FDA-Public Use
  Company Number: DE-ABBOTT-04P-062-0273379-00

PATIENT
  Sex: Male
  Weight: 92 kg

DRUGS (8)
  1. HUMIRA [Suspect]
     Indication: ANKYLOSING SPONDYLITIS
     Route: 058
     Dates: start: 20040317, end: 20040525
  2. HUMIRA [Suspect]
     Route: 058
     Dates: start: 20040609, end: 20040721
  3. HUMIRA [Suspect]
     Route: 058
     Dates: start: 20040804, end: 20040906
  4. VOLTAREN [Concomitant]
     Indication: ANKYLOSING SPONDYLITIS
     Dates: start: 20030601
  5. INDOMETHACIN [Concomitant]
     Indication: ANKYLOSING SPONDYLITIS
     Dates: start: 20030101, end: 20031101
  6. ANTRA [Concomitant]
     Indication: GASTRITIS
     Dates: start: 20020220, end: 20040331
  7. ANTRA [Concomitant]
     Dates: start: 20040401, end: 20040923
  8. FELDENE [Concomitant]
     Indication: DRUG USE FOR UNKNOWN INDICATION

REACTIONS (1)
  - MYOPATHY [None]
